FAERS Safety Report 6667350-X (Version None)
Quarter: 2010Q2

REPORT INFORMATION
  Report Type: 
  Country: None (occurrence: None)
  Receive Date: 20100401
  Receipt Date: 20100401
  Transmission Date: 20101027
  Serious: Yes (Hospitalization)
  Sender: FDA-Public Use
  Company Number: None

PATIENT
  Sex: Male
  Weight: 79.3 kg

DRUGS (8)
  1. CYCLOPHOSPHAMIDE [Suspect]
     Dosage: 1900 MG
  2. CYTARABINE [Suspect]
     Dosage: 1180 MG
  3. DEXAMETHASONE [Suspect]
     Dosage: 280 MG
  4. DOXORUBICIN HCL [Suspect]
     Dosage: 142.5 MG
  5. METHOTREXATE [Suspect]
     Dosage: 45 MG
  6. PEG-L-ASPARAGINASE (K-H) [Suspect]
     Dosage: 4750 MG
  7. THIOGUANINE [Suspect]
     Dosage: 1340 MG
  8. VINCRISTINE SULFATE [Suspect]
     Dosage: 6 MG

REACTIONS (5)
  - AGITATION [None]
  - BLOOD CULTURE POSITIVE [None]
  - ENCEPHALOPATHY [None]
  - HEADACHE [None]
  - STAPHYLOCOCCAL INFECTION [None]
